FAERS Safety Report 11417841 (Version 1)
Quarter: 2015Q3

REPORT INFORMATION
  Report Type: Report from Study
  Country: US (occurrence: US)
  Receive Date: 20150825
  Receipt Date: 20150825
  Transmission Date: 20151125
  Serious: Yes (Other)
  Sender: FDA-Public Use
  Company Number: US-GILEAD-2015-0168659

PATIENT
  Age: 60 Year
  Sex: Male

DRUGS (1)
  1. RANOLAZINE [Suspect]
     Active Substance: RANOLAZINE
     Indication: ANGINA PECTORIS
     Dosage: 1000 MG, UNK
     Route: 048

REACTIONS (5)
  - Chest pain [Unknown]
  - Myocardial infarction [Unknown]
  - Intestinal haemorrhage [Unknown]
  - Stent placement [Unknown]
  - Arteriosclerosis [Not Recovered/Not Resolved]

NARRATIVE: CASE EVENT DATE: 20150816
